FAERS Safety Report 21865858 (Version 1)
Quarter: 2023Q1

REPORT INFORMATION
  Report Type: Spontaneous
  Country: FR (occurrence: FR)
  Receive Date: 20230116
  Receipt Date: 20230116
  Transmission Date: 20230418
  Serious: Yes (Hospitalization, Other)
  Sender: FDA-Public Use
  Company Number: None

PATIENT
  Age: 61 Year
  Sex: Male
  Weight: 145 kg

DRUGS (5)
  1. LOVENOX [Suspect]
     Active Substance: ENOXAPARIN SODIUM
     Indication: Pulmonary embolism
     Dosage: 6000 IU, 1X, ANTI-XA IU/0.6 ML
     Route: 058
     Dates: start: 20221206, end: 20221206
  2. ESCITALOPRAM OXALATE [Suspect]
     Active Substance: ESCITALOPRAM OXALATE
     Indication: Mixed anxiety and depressive disorder
     Dosage: 20 MG, QD
     Route: 048
     Dates: start: 2020, end: 20221209
  3. LEVETIRACETAMUM [Concomitant]
     Indication: Epilepsy
     Dosage: 1 G, BID
     Route: 048
     Dates: start: 20221115
  4. ALPRAZOLAM [Concomitant]
     Active Substance: ALPRAZOLAM
     Indication: Mixed anxiety and depressive disorder
     Dosage: 0.5 MG, QD
     Route: 048
  5. OXAZEPAM [Concomitant]
     Active Substance: OXAZEPAM
     Indication: Mixed anxiety and depressive disorder
     Dosage: 10 MG, TID
     Route: 048
     Dates: start: 20221206

REACTIONS (3)
  - Stroke in evolution [Recovering/Resolving]
  - Labelled drug-disease interaction medication error [Unknown]
  - Contraindicated product prescribed [Unknown]

NARRATIVE: CASE EVENT DATE: 20221206
